FAERS Safety Report 24772792 (Version 1)
Quarter: 2024Q4

REPORT INFORMATION
  Report Type: Report from Study
  Country: US (occurrence: US)
  Receive Date: 20241225
  Receipt Date: 20241225
  Transmission Date: 20250115
  Serious: Yes (Hospitalization, Other)
  Sender: JOHNSON AND JOHNSON
  Company Number: US-JNJFOC-20240881175

PATIENT
  Age: 34 Year
  Sex: Male

DRUGS (3)
  1. SPRAVATO [Suspect]
     Active Substance: ESKETAMINE
     Indication: Depression
     Route: 045
     Dates: start: 20240819
  2. SPRAVATO [Suspect]
     Active Substance: ESKETAMINE
     Dosage: ^84 MG, 2 TOTAL DOSES^
     Route: 045
     Dates: start: 20240820, end: 20240821
  3. SPRAVATO [Suspect]
     Active Substance: ESKETAMINE
     Dosage: ^1 TOTAL DOSE^
     Route: 045
     Dates: start: 20240910

REACTIONS (5)
  - Bipolar I disorder [Unknown]
  - Hospitalisation [Unknown]
  - Post-traumatic stress disorder [Unknown]
  - Product dose omission issue [Unknown]
  - Agoraphobia [Unknown]

NARRATIVE: CASE EVENT DATE: 20240101
